FAERS Safety Report 6529623-0 (Version None)
Quarter: 2010Q1

REPORT INFORMATION
  Report Type: 
  Country: None (occurrence: None)
  Receive Date: 20100107
  Receipt Date: 20100104
  Transmission Date: 20100710
  Serious: Yes (Death, Life-Threatening, Hospitalization)
  Sender: FDA-Public Use
  Company Number: FR-JNJFOC-20100100553

PATIENT
  Age: 63 Year
  Sex: Female

DRUGS (6)
  1. REMICADE [Suspect]
     Indication: RHEUMATOID ARTHRITIS
     Route: 042
  2. ARAVA [Suspect]
     Indication: DRUG USE FOR UNKNOWN INDICATION
     Route: 048
  3. PREVISCAN (FLUINDIONE) [Suspect]
     Indication: PULMONARY ARTERIAL HYPERTENSION
  4. HYDROCORTISONE [Concomitant]
  5. REVATIO [Concomitant]
     Indication: PULMONARY ARTERIAL HYPERTENSION
  6. FLOLAN [Concomitant]
     Indication: PULMONARY ARTERIAL HYPERTENSION

REACTIONS (6)
  - ASTHMA [None]
  - DEATH [None]
  - HAEMATOMA [None]
  - KLEBSIELLA INFECTION [None]
  - PULMONARY ARTERIAL HYPERTENSION [None]
  - STAPHYLOCOCCAL SEPSIS [None]
